FAERS Safety Report 4407257-1 (Version None)
Quarter: 2004Q3

REPORT INFORMATION
  Report Type: 
  Country: None (occurrence: None)
  Receive Date: 20040721
  Receipt Date: 20040706
  Transmission Date: 20050211
  Serious: Yes (Other)
  Sender: FDA-Public Use
  Company Number: DSA_80659_2004

PATIENT
  Age: 30 Year
  Sex: Female
  Weight: 95.2554 kg

DRUGS (25)
  1. XYREM [Suspect]
     Indication: NARCOLEPSY
     Dosage: SEE IMAGE
     Route: 048
     Dates: start: 20040401, end: 20040520
  2. XYREM [Suspect]
     Indication: NARCOLEPSY
     Dosage: SEE IMAGE
     Route: 048
     Dates: start: 20040520, end: 20040524
  3. XYREM [Suspect]
     Indication: NARCOLEPSY
     Dosage: SEE IMAGE
     Route: 048
     Dates: start: 20040101
  4. POTASSIUM [Concomitant]
  5. ATIVAN [Concomitant]
  6. ZYRTEC-D 12 HOUR [Concomitant]
  7. EFFEXOR XR [Concomitant]
  8. LEVSIN PB [Concomitant]
  9. TOPROL-XL [Concomitant]
  10. FLONASE [Concomitant]
  11. FLOVENT [Concomitant]
  12. SEREVENT [Concomitant]
  13. ALBUTEROL [Concomitant]
  14. PATENOL [Concomitant]
  15. DONNATAL EXTENDTABS [Concomitant]
  16. CHOLESTYRAMINE POWDER [Concomitant]
  17. TRAMADOL HCL [Concomitant]
  18. HYDROCHLOROTHIAZIDE [Concomitant]
  19. JOINT SUPPORT COMPLEX [Concomitant]
  20. CRANTRATE [Concomitant]
  21. FOLIC ACID [Concomitant]
  22. CALCIUM [Concomitant]
  23. ACIDOPHILUS ^ZYMA^ [Concomitant]
  24. CENTRUM [Concomitant]
  25. SALINE NASAL SPRAY [Concomitant]

REACTIONS (9)
  - AGITATION [None]
  - ERYTHEMA [None]
  - GINGIVAL BLEEDING [None]
  - MENTAL DISORDER [None]
  - RASH MACULAR [None]
  - SKIN BURNING SENSATION [None]
  - SWELLING [None]
  - THROAT IRRITATION [None]
  - THROAT TIGHTNESS [None]
